FAERS Safety Report 23327145 (Version 1)
Quarter: 2023Q4

REPORT INFORMATION
  Report Type: Spontaneous
  Country: GB (occurrence: GB)
  Receive Date: 20231221
  Receipt Date: 20231221
  Transmission Date: 20240109
  Serious: Yes (Congenital Anomaly)
  Sender: FDA-Public Use
  Company Number: None

PATIENT
  Age: 93 Year

DRUGS (21)
  1. DICLOFENAC [Suspect]
     Active Substance: DICLOFENAC
     Route: 065
  2. PARAFFIN\WAX, EMULSIFYING [Concomitant]
     Active Substance: PARAFFIN\WAX, EMULSIFYING
  3. EDOXABAN [Concomitant]
     Active Substance: EDOXABAN
  4. DEXIBUPROFEN [Concomitant]
     Active Substance: DEXIBUPROFEN
     Dosage: TIME INTERVAL: 1 AS NECESSARY: TDS PRN
  5. CAPSAICIN [Suspect]
     Active Substance: CAPSAICIN
     Route: 065
  6. BENZYDAMINE [Concomitant]
     Active Substance: BENZYDAMINE
     Dosage: TIME INTERVAL: AS NECESSARY: QDS PRN
  7. DOCUSATE [Concomitant]
     Active Substance: DOCUSATE
  8. PARAFFIN [Concomitant]
     Active Substance: PARAFFIN
  9. PSEUDOEPHEDRINE [Concomitant]
     Active Substance: PSEUDOEPHEDRINE
  10. EPHEDRINE [Concomitant]
     Active Substance: EPHEDRINE
  11. BUMETANIDE [Concomitant]
     Active Substance: BUMETANIDE
     Dosage: MORNING
  12. SENNA [Concomitant]
     Active Substance: SENNA LEAF\SENNOSIDES\SENNOSIDES A AND B
     Dosage: NIGHT
     Route: 065
  13. NICORANDIL [Concomitant]
     Active Substance: NICORANDIL
     Route: 065
  14. MINERAL OIL [Concomitant]
     Active Substance: MINERAL OIL
  15. NITROGLYCERIN [Concomitant]
     Active Substance: NITROGLYCERIN
     Dosage: TIME INTERVAL: AS NECESSARY
     Route: 065
  16. CHLORPHENIRAMINE MALEATE [Concomitant]
     Active Substance: CHLORPHENIRAMINE MALEATE
     Dosage: TIME INTERVAL: AS NECESSARY: QDS PRN
     Route: 065
  17. COSMETICS [Concomitant]
     Active Substance: COSMETICS
     Route: 065
  18. YELLOW SOFT PARAFFIN [Concomitant]
     Dosage: PRN
     Route: 065
  19. MORPHINE [Concomitant]
     Active Substance: MORPHINE
     Dosage: TIME INTERVAL: AS NECESSARY: EVERY 4 HRS PRN
     Route: 065
  20. POLYETHYLENE GLYCOLS [Suspect]
     Active Substance: POLYETHYLENE GLYCOLS
     Route: 065
  21. LOSARTAN [Concomitant]
     Active Substance: LOSARTAN
     Dosage: MORNING
     Route: 065
     Dates: start: 20231201

REACTIONS (2)
  - Swelling face [Unknown]
  - Pruritus [Unknown]
